FAERS Safety Report 20161177 (Version 2)
Quarter: 2022Q3

REPORT INFORMATION
  Report Type: Report from Study
  Country: US (occurrence: US)
  Receive Date: 20211208
  Receipt Date: 20220808
  Transmission Date: 20221027
  Serious: No
  Sender: FDA-Public Use
  Company Number: US-GILEAD-2021-0559774

PATIENT
  Age: 69 Year
  Sex: Male

DRUGS (1)
  1. REMDESIVIR [Suspect]
     Active Substance: REMDESIVIR
     Indication: COVID-19
     Dosage: 100MG, INTRAVENOUSLY, IN-PATIENT ONCE
     Route: 042

REACTIONS (2)
  - Pyrexia [Unknown]
  - Oxygen saturation decreased [Unknown]
